FAERS Safety Report 11432874 (Version 1)
Quarter: 2015Q3

REPORT INFORMATION
  Report Type: Spontaneous
  Country: BR (occurrence: BR)
  Receive Date: 20150828
  Receipt Date: 20150828
  Transmission Date: 20151125
  Serious: Yes (Hospitalization)
  Sender: FDA-Public Use
  Company Number: BR-GLAXOSMITHKLINE-BR2015GSK122681

PATIENT
  Age: 4 Month
  Sex: Male
  Weight: 7.5 kg

DRUGS (1)
  1. AEROLIN NEBULES [Suspect]
     Active Substance: ALBUTEROL SULFATE
     Indication: RESPIRATORY DISTRESS
     Dosage: UNK
     Route: 055
     Dates: start: 20150824, end: 20150824

REACTIONS (3)
  - Tachycardia [Not Recovered/Not Resolved]
  - Off label use [Recovered/Resolved]
  - Drug administration error [Recovered/Resolved]

NARRATIVE: CASE EVENT DATE: 20150824
